FAERS Safety Report 21274025 (Version 1)
Quarter: 2022Q3

REPORT INFORMATION
  Report Type: Spontaneous
  Country: US (occurrence: None)
  Receive Date: 20220830
  Receipt Date: 20220830
  Transmission Date: 20221026
  Serious: No
  Sender: FDA-Public Use
  Company Number: None

PATIENT
  Age: 63 Year
  Sex: Female

DRUGS (1)
  1. STELARA [Suspect]
     Active Substance: USTEKINUMAB
     Indication: Rheumatoid arthritis
     Dates: start: 20160818

REACTIONS (3)
  - Needle issue [None]
  - Injection site extravasation [None]
  - Incorrect dose administered [None]

NARRATIVE: CASE EVENT DATE: 20220811
